FAERS Safety Report 12804173 (Version 1)
Quarter: 2016Q4

REPORT INFORMATION
  Report Type: Spontaneous
  Country: US (occurrence: US)
  Receive Date: 20161003
  Receipt Date: 20161003
  Transmission Date: 20170207
  Serious: Yes (Other)
  Sender: FDA-Public Use
  Company Number: US-BELCHER PHARMACEUTICALS, LLC-2016VTS00104

PATIENT
  Sex: Male

DRUGS (1)
  1. HYOSCYAMINE SULFATE ODT [Suspect]
     Active Substance: HYOSCYAMINE SULFATE

REACTIONS (10)
  - Balance disorder [Unknown]
  - Amnesia [Unknown]
  - Dry mouth [Unknown]
  - Dizziness [Unknown]
  - Fall [Unknown]
  - Hallucination [Unknown]
  - Confusional state [Unknown]
  - Loss of consciousness [Unknown]
  - Dysarthria [Unknown]
  - Vision blurred [Unknown]
